FAERS Safety Report 21572447 (Version 3)
Quarter: 2023Q1

REPORT INFORMATION
  Report Type: Spontaneous
  Country: US (occurrence: None)
  Receive Date: 20221109
  Receipt Date: 20230123
  Transmission Date: 20230418
  Serious: No
  Sender: FDA-Public Use
  Company Number: 2022A364584

PATIENT
  Age: 21971 Day
  Sex: Female

DRUGS (2)
  1. BYDUREON BCISE [Suspect]
     Active Substance: EXENATIDE
     Indication: Diabetes mellitus
     Dosage: 2.0MG UNKNOWN
     Route: 058
  2. BYDUREON BCISE [Suspect]
     Active Substance: EXENATIDE
     Indication: Glycosylated haemoglobin abnormal
     Dosage: 2.0MG UNKNOWN
     Route: 058

REACTIONS (4)
  - Injection site haemorrhage [Not Recovered/Not Resolved]
  - Wrong technique in device usage process [Unknown]
  - Drug delivery system malfunction [Not Recovered/Not Resolved]
  - Device leakage [Unknown]

NARRATIVE: CASE EVENT DATE: 20221029
